FAERS Safety Report 18633529 (Version 2)
Quarter: 2021Q1

REPORT INFORMATION
  Report Type: Other
  Country: BE (occurrence: BE)
  Receive Date: 20201218
  Receipt Date: 20210101
  Transmission Date: 20210419
  Serious: Yes (Other)
  Sender: FDA-Public Use
  Company Number: BE-ROCHE-2730023

PATIENT
  Age: 65 Year
  Sex: Female

DRUGS (2)
  1. ABRAXANE [Suspect]
     Active Substance: PACLITAXEL
     Indication: TRIPLE NEGATIVE BREAST CANCER
     Route: 041
     Dates: start: 20201022
  2. TECENTRIQ [Suspect]
     Active Substance: ATEZOLIZUMAB
     Indication: TRIPLE NEGATIVE BREAST CANCER
     Dosage: 840 MG/14 ML
     Route: 042
     Dates: start: 20200305, end: 20200702

REACTIONS (3)
  - Rheumatoid arthritis [Recovering/Resolving]
  - Skin toxicity [Recovered/Resolved]
  - Triple negative breast cancer [Unknown]

NARRATIVE: CASE EVENT DATE: 20200709
